FAERS Safety Report 8260953-0 (Version None)
Quarter: 2012Q2

REPORT INFORMATION
  Report Type: 
  Country: None (occurrence: None)
  Receive Date: 20120405
  Receipt Date: 20120403
  Transmission Date: 20120825
  Serious: No
  Sender: FDA-Public Use
  Company Number: US-PFIZER INC-2012084637

PATIENT
  Sex: Male
  Weight: 79.4 kg

DRUGS (6)
  1. OMEPRAZOLE [Concomitant]
     Dosage: UNK
  2. FLONASE [Concomitant]
     Indication: ASTHMA
     Dosage: UNK
  3. ALBUTEROL [Concomitant]
     Indication: ASTHMA
     Dosage: UNK
  4. ADVAIR DISKUS 100/50 [Concomitant]
     Indication: ASTHMA
     Dosage: UNK
  5. CHANTIX [Suspect]
     Indication: SMOKING CESSATION THERAPY
     Dosage: 0.5 MG, 1X/DAY
     Route: 048
     Dates: start: 20120326
  6. CHANTIX [Suspect]
     Dosage: UNK
     Route: 048

REACTIONS (5)
  - OXYGEN SATURATION DECREASED [None]
  - STRESS [None]
  - ANXIETY [None]
  - MEMORY IMPAIRMENT [None]
  - PAIN [None]
